FAERS Safety Report 17913472 (Version 2)
Quarter: 2020Q2

REPORT INFORMATION
  Report Type: Spontaneous
  Country: US (occurrence: US)
  Receive Date: 20200618
  Receipt Date: 20200623
  Transmission Date: 20200714
  Serious: Yes (Life-Threatening, Hospitalization, Other)
  Sender: FDA-Public Use
  Company Number: US-PFIZER INC-2020236201

PATIENT
  Age: 83 Year
  Sex: Female
  Weight: 52.62 kg

DRUGS (3)
  1. XELJANZ XR [Suspect]
     Active Substance: TOFACITINIB CITRATE
     Indication: RHEUMATOID ARTHRITIS
     Dosage: 11 MG, DAILY
     Dates: end: 20200330
  2. XELJANZ XR [Suspect]
     Active Substance: TOFACITINIB CITRATE
     Indication: COLITIS
  3. SYNTHROID [Concomitant]
     Active Substance: LEVOTHYROXINE SODIUM
     Indication: THYROIDECTOMY
     Dosage: 75 UG, 6 DAYS A WEEK

REACTIONS (8)
  - Herpes zoster [Recovered/Resolved]
  - Splinter [Unknown]
  - Blood electrolytes decreased [Unknown]
  - Rash [Unknown]
  - Dehydration [Unknown]
  - Post herpetic neuralgia [Not Recovered/Not Resolved]
  - Malaise [Unknown]
  - SARS-CoV-2 test positive [Recovered/Resolved]

NARRATIVE: CASE EVENT DATE: 2020
